FAERS Safety Report 7335727-5 (Version None)
Quarter: 2011Q1

REPORT INFORMATION
  Report Type: 
  Country: None (occurrence: None)
  Receive Date: 20110307
  Receipt Date: 20110221
  Transmission Date: 20110831
  Serious: Yes (Other)
  Sender: FDA-Public Use
  Company Number: B0702083A

PATIENT
  Sex: Female

DRUGS (18)
  1. WARFARIN [Concomitant]
     Route: 048
  2. SOLULACT [Concomitant]
     Route: 042
  3. PAXIL [Suspect]
     Indication: DEPRESSION
     Dosage: 10MG PER DAY
     Route: 048
     Dates: start: 20110217, end: 20110222
  4. MAGMITT [Concomitant]
     Route: 048
  5. TULOBUTEROL [Concomitant]
  6. PIPERACILLIN SODIUM [Concomitant]
     Route: 042
  7. PLETAL [Concomitant]
     Route: 048
  8. GASPORT [Concomitant]
     Route: 048
  9. DOPAMINE HYDROCHLORIDE [Concomitant]
  10. LOXOPROFEN [Concomitant]
     Route: 048
  11. HANP [Concomitant]
     Route: 042
  12. FUROSEMIDE [Concomitant]
     Route: 042
  13. BROTIZOLAM [Concomitant]
     Route: 048
  14. MEIACT [Concomitant]
     Route: 048
  15. ARICEPT [Concomitant]
  16. SOLDEM [Concomitant]
     Route: 042
  17. POTASSIUM CANRENOATE [Concomitant]
     Route: 042
  18. GLUCOSE [Concomitant]
     Route: 042

REACTIONS (2)
  - PARKINSONISM [None]
  - TREMOR [None]
